FAERS Safety Report 22092475 (Version 5)
Quarter: 2023Q2

REPORT INFORMATION
  Report Type: Report from Study
  Country: IL (occurrence: None)
  Receive Date: 20230314
  Receipt Date: 20230608
  Transmission Date: 20230721
  Serious: Yes (Hospitalization)
  Sender: FDA-Public Use
  Company Number: IL-ROCHE-3299042

PATIENT
  Age: 54 Year
  Sex: Female
  Weight: 74 kg

DRUGS (31)
  1. MOSUNETUZUMAB [Suspect]
     Active Substance: MOSUNETUZUMAB
     Indication: Non-Hodgkin^s lymphoma
     Dosage: DATE OF MOST RECENT DOSE OF STUDY DRUG PRIOR TO AE: 31/JAN/2023?DATE OF MOST RECENT DOSE OF STUDY DR
     Route: 058
     Dates: start: 20230110
  2. CC-99282 [Suspect]
     Active Substance: CC-99282
     Indication: Non-Hodgkin^s lymphoma
     Dosage: DATE OF MOST RECENT DOSE OF  0.2 MG STUDY DRUG PRIOR TO SAE: 20/FEB/2023?DATE OF MOST RECENT DOSE OF
     Route: 048
     Dates: start: 20230207
  3. LOSARTAN [Concomitant]
     Active Substance: LOSARTAN
     Indication: Hypertension
     Route: 048
     Dates: start: 2012
  4. OMEPRAZOLE [Concomitant]
     Active Substance: OMEPRAZOLE
     Indication: Dyspepsia
     Route: 048
     Dates: start: 2021
  5. ESTRADIOL [Concomitant]
     Active Substance: ESTRADIOL
     Indication: Hysterectomy
     Route: 048
     Dates: start: 2015
  6. TRAMADOL HYDROCHLORIDE [Concomitant]
     Active Substance: TRAMADOL HYDROCHLORIDE
     Route: 048
     Dates: start: 2020
  7. ALLOPURINOL [Concomitant]
     Active Substance: ALLOPURINOL
     Route: 048
     Dates: start: 20230110
  8. MAGNOX [Concomitant]
     Indication: Hypomagnesaemia
     Route: 048
     Dates: start: 20230110
  9. ACETAMINOPHEN [Concomitant]
     Active Substance: ACETAMINOPHEN
     Indication: Headache
     Route: 048
     Dates: start: 20230110
  10. ACETAMINOPHEN [Concomitant]
     Active Substance: ACETAMINOPHEN
     Indication: Pyrexia
     Route: 048
     Dates: start: 20230111, end: 20230112
  11. ACETAMINOPHEN [Concomitant]
     Active Substance: ACETAMINOPHEN
     Route: 048
     Dates: start: 20230214, end: 20230214
  12. ACETAMINOPHEN [Concomitant]
     Active Substance: ACETAMINOPHEN
     Route: 048
     Dates: start: 20230306, end: 20230308
  13. ACETAMINOPHEN [Concomitant]
     Active Substance: ACETAMINOPHEN
     Route: 042
     Dates: start: 20230309, end: 20230309
  14. PROTHIAZINE [Concomitant]
     Route: 048
     Dates: start: 20230110
  15. DEXAMETHASONE [Concomitant]
     Active Substance: DEXAMETHASONE
     Route: 048
     Dates: start: 20230110
  16. BRONCHOLATE [Concomitant]
     Indication: Laryngitis
     Route: 048
     Dates: start: 20230214, end: 20230220
  17. NEUPOGEN [Concomitant]
     Active Substance: FILGRASTIM
     Indication: Febrile neutropenia
     Route: 058
     Dates: start: 20230221, end: 20230221
  18. NEUPOGEN [Concomitant]
     Active Substance: FILGRASTIM
     Indication: Neutropenia
     Route: 058
     Dates: start: 20230222, end: 20230304
  19. NEUPOGEN [Concomitant]
     Active Substance: FILGRASTIM
     Route: 058
     Dates: start: 20230309, end: 20230310
  20. PIPERACILLIN SODIUM\TAZOBACTAM SODIUM [Concomitant]
     Active Substance: PIPERACILLIN SODIUM\TAZOBACTAM SODIUM
     Indication: Febrile neutropenia
     Route: 042
     Dates: start: 20230221, end: 20230227
  21. BARACLUDE [Concomitant]
     Active Substance: ENTECAVIR
     Route: 048
     Dates: start: 20180124
  22. SULFATRIM FORTE [Concomitant]
     Dosage: 1 TABLET
     Route: 048
     Dates: start: 20230222, end: 20230228
  23. SULFATRIM FORTE [Concomitant]
     Dosage: 1 TABLET
     Route: 048
     Dates: start: 20230307, end: 20230312
  24. SODIUM CHLORIDE [Concomitant]
     Active Substance: SODIUM CHLORIDE
     Route: 042
     Dates: start: 20230223, end: 20230228
  25. MAGNESIUM SULFATE [Concomitant]
     Active Substance: MAGNESIUM SULFATE
     Indication: Hypomagnesaemia
     Route: 042
     Dates: start: 20230223, end: 20230223
  26. MAGNESIUM SULFATE [Concomitant]
     Active Substance: MAGNESIUM SULFATE
     Route: 042
     Dates: start: 20230225, end: 20230225
  27. MAGNESIUM SULFATE [Concomitant]
     Active Substance: MAGNESIUM SULFATE
     Route: 042
     Dates: start: 20230307, end: 20230307
  28. LEVOFLOXACIN [Concomitant]
     Active Substance: LEVOFLOXACIN
     Route: 048
     Dates: start: 20230228, end: 20230304
  29. FUSID (ISRAEL) [Concomitant]
     Route: 042
     Dates: start: 20230309, end: 20230309
  30. DICLOFENAC SODIUM [Concomitant]
     Active Substance: DICLOFENAC SODIUM
     Route: 048
     Dates: start: 20230312, end: 20230315
  31. CEFORAL (ISRAEL) [Concomitant]
     Route: 048
     Dates: start: 20230312, end: 20230315

REACTIONS (3)
  - Herpes zoster disseminated [Recovered/Resolved]
  - Injection site reaction [Recovered/Resolved]
  - Injection site reaction [Recovered/Resolved]

NARRATIVE: CASE EVENT DATE: 20230201
